FAERS Safety Report 6473058-6 (Version None)
Quarter: 2009Q4

REPORT INFORMATION
  Report Type: 
  Country: None (occurrence: None)
  Receive Date: 20091204
  Receipt Date: 20091124
  Transmission Date: 20100525
  Serious: Yes (Other)
  Sender: FDA-Public Use
  Company Number: US-JNJFOC-20091107329

PATIENT
  Sex: Female
  Weight: 58.97 kg

DRUGS (3)
  1. REMICADE [Suspect]
     Indication: CROHN'S DISEASE
     Route: 042
     Dates: start: 20090925, end: 20091009
  2. ATENOLOL [Concomitant]
     Indication: HYPERTENSION
  3. PLAVIX [Concomitant]

REACTIONS (7)
  - CHEST DISCOMFORT [None]
  - CHILLS [None]
  - CONVULSION [None]
  - INFUSION RELATED REACTION [None]
  - LOSS OF CONSCIOUSNESS [None]
  - MUSCLE SPASMS [None]
  - PAIN IN EXTREMITY [None]
